FAERS Safety Report 9956563 (Version 2)
Quarter: 2014Q1

REPORT INFORMATION
  Report Type: Spontaneous
  Country: US (occurrence: US)
  Receive Date: 20140304
  Receipt Date: 20140304
  Transmission Date: 20141002
  Serious: No
  Sender: FDA-Public Use
  Company Number: US-ABBVIE-13P-163-1086217-00

PATIENT
  Age: 68 Year
  Sex: Female
  Weight: 153.45 kg

DRUGS (20)
  1. HUMIRA [Suspect]
     Indication: RHEUMATOID ARTHRITIS
     Dates: start: 20130501
  2. METHOTREXATE [Concomitant]
     Indication: RHEUMATOID ARTHRITIS
  3. TYLENOL [Concomitant]
     Indication: PAIN
  4. INSULIN [Concomitant]
     Indication: DIABETES MELLITUS
  5. SYNTHROID [Concomitant]
     Indication: HYPOTHYROIDISM
  6. SINGULAIR [Concomitant]
     Indication: HYPERSENSITIVITY
  7. LISINOPRIL [Concomitant]
     Indication: HYPERTENSION
     Dosage: 40MG IN AM/ 20MG AT HS
     Dates: start: 1990
  8. CALAN [Concomitant]
     Indication: HYPERTENSION
     Dosage: AT BEDTIME
  9. CALAN [Concomitant]
     Indication: SUPRAVENTRICULAR TACHYCARDIA
  10. FOLIC ACID [Concomitant]
     Indication: VITAMIN SUPPLEMENTATION
  11. PULMICORT [Concomitant]
     Indication: ASTHMA
     Dosage: IN AM
  12. VENTOLIN [Concomitant]
     Indication: HYPERSENSITIVITY
  13. NASONEX [Concomitant]
     Indication: HYPERSENSITIVITY
     Dosage: 2-3 TIMES PER WEEK
  14. CALCIUM [Concomitant]
     Indication: MINERAL SUPPLEMENTATION
  15. VITAMIN D [Concomitant]
     Indication: VITAMIN SUPPLEMENTATION
  16. COD LIVER OIL [Concomitant]
     Indication: SUPPLEMENTATION THERAPY
  17. ECHINACEA [Concomitant]
     Indication: SUPPLEMENTATION THERAPY
  18. LANTUS [Concomitant]
     Indication: DIABETES MELLITUS
     Dosage: AT BEDTIME
  19. MAX AIR INHALER [Concomitant]
     Indication: ASTHMA
     Dosage: AM + PM
  20. GABAPENTIN [Concomitant]
     Indication: DIABETES MELLITUS

REACTIONS (5)
  - Muscular weakness [Not Recovered/Not Resolved]
  - Rheumatoid arthritis [Not Recovered/Not Resolved]
  - Sensation of heaviness [Not Recovered/Not Resolved]
  - Hypokinesia [Not Recovered/Not Resolved]
  - Drug ineffective [Not Recovered/Not Resolved]
